FAERS Safety Report 6988626-2 (Version None)
Quarter: 2010Q3

REPORT INFORMATION
  Report Type: 
  Country: None (occurrence: None)
  Receive Date: 20100916
  Receipt Date: 20100908
  Transmission Date: 20110219
  Serious: Yes (Death)
  Sender: FDA-Public Use
  Company Number: SI-ABBOTT-10P-261-0669216-00

PATIENT
  Age: 62 Year
  Sex: Male
  Weight: 86 kg

DRUGS (1)
  1. TARKA [Suspect]
     Indication: HYPERTENSION
     Dosage: 240/4MG TOTAL DAILY DOSE
     Route: 048
     Dates: start: 20081107, end: 20090310

REACTIONS (1)
  - ACUTE MYOCARDIAL INFARCTION [None]
